FAERS Safety Report 9320305 (Version 2)
Quarter: 2013Q4

REPORT INFORMATION
  Report Type: Spontaneous
  Country: US (occurrence: US)
  Receive Date: 20130530
  Receipt Date: 20131114
  Transmission Date: 20140711
  Serious: Yes (Hospitalization, Other)
  Sender: FDA-Public Use
  Company Number: US-B.I. PHARMACEUTICALS,INC./RIDGEFIELD-2013-BI-14538BP

PATIENT
  Age: 69 Year
  Sex: Male
  Weight: 99.79 kg

DRUGS (13)
  1. PRADAXA [Suspect]
     Indication: ANTICOAGULANT THERAPY
     Dosage: 300 MG
     Dates: start: 20111010, end: 20111024
  2. PRADAXA [Suspect]
     Indication: ATRIAL FIBRILLATION
  3. LASIX [Concomitant]
     Dosage: 360 MG
  4. SPIRONOLACTONE [Concomitant]
  5. LISINOPRIL [Concomitant]
     Dosage: 40 MG
  6. ASPIRIN [Concomitant]
     Dosage: 325 MG
  7. LISPRO INSULIN [Concomitant]
     Indication: TYPE 2 DIABETES MELLITUS
     Dosage: 30 U
  8. ATENOLOL [Concomitant]
     Dosage: 25 MG
  9. NPH INSULIN [Concomitant]
     Dosage: 76 U
  10. LEVOTHYROXINE [Concomitant]
     Dosage: 137 MCG
  11. NIFEDIPINE XL [Concomitant]
     Dosage: 90 MG
  12. PRAVASTATIN [Concomitant]
     Dosage: 40 MG
  13. COLCHICINE [Concomitant]

REACTIONS (5)
  - Gastrointestinal haemorrhage [Unknown]
  - Haemorrhagic anaemia [Unknown]
  - Renal failure acute [Unknown]
  - Acute myocardial infarction [Unknown]
  - Cardiac failure congestive [Unknown]
